FAERS Safety Report 18023406 (Version 1)
Quarter: 2020Q3

REPORT INFORMATION
  Report Type: Spontaneous
  Country: AU (occurrence: AU)
  Receive Date: 20200715
  Receipt Date: 20200715
  Transmission Date: 20201103
  Serious: Yes (Other)
  Sender: FDA-Public Use
  Company Number: AU-AMGEN-AUSSP2019150861

PATIENT
  Age: 70 Year
  Sex: Female

DRUGS (6)
  1. TOUJEO [Concomitant]
     Active Substance: INSULIN GLARGINE
     Indication: TYPE 1 DIABETES MELLITUS
  2. TRAMADOL. [Concomitant]
     Active Substance: TRAMADOL
  3. LASIX [Concomitant]
     Active Substance: FUROSEMIDE
     Indication: OEDEMA
  4. TARGIN [Concomitant]
     Active Substance: NALOXONE HYDROCHLORIDE\OXYCODONE HYDROCHLORIDE
  5. PROLIA [Suspect]
     Active Substance: DENOSUMAB
     Indication: OSTEOPOROSIS
     Dosage: UNK
     Route: 065
     Dates: start: 20190619
  6. NOVORAPID [Concomitant]
     Active Substance: INSULIN ASPART
     Indication: TYPE 1 DIABETES MELLITUS

REACTIONS (13)
  - Gastrectomy [Unknown]
  - Jaw disorder [Unknown]
  - Feeling cold [Unknown]
  - Adverse reaction [Unknown]
  - Rash pruritic [Unknown]
  - Arthralgia [Unknown]
  - Rhinorrhoea [Unknown]
  - Feeling hot [Unknown]
  - Gingival swelling [Unknown]
  - Blood calcium decreased [Unknown]
  - Dysphagia [Unknown]
  - Noninfective gingivitis [Unknown]
  - Rash papular [Unknown]

NARRATIVE: CASE EVENT DATE: 20190621
